FAERS Safety Report 22045741 (Version 6)
Quarter: 2024Q1

REPORT INFORMATION
  Report Type: Spontaneous
  Country: US (occurrence: US)
  Receive Date: 20230228
  Receipt Date: 20240222
  Transmission Date: 20240410
  Serious: Yes (Hospitalization, Other)
  Sender: FDA-Public Use
  Company Number: US-PFIZER INC-PV202300038578

PATIENT
  Age: 83 Year
  Sex: Female

DRUGS (6)
  1. IBRANCE [Suspect]
     Active Substance: PALBOCICLIB
     Indication: Breast cancer female
     Dosage: 100 MG
     Dates: start: 202302
  2. IBRANCE [Suspect]
     Active Substance: PALBOCICLIB
     Dosage: TAKE 1 TABLET BY ORAL ROUTE EVERY DAY FOR 21 CONSECUTIVE DAYS, FOLLOWED BY 7 DAYS OFF
     Route: 048
  3. AROMASIN [Suspect]
     Active Substance: EXEMESTANE
     Indication: Breast cancer female
     Dosage: UNK
     Dates: start: 20200911
  4. FEMARA [Concomitant]
     Active Substance: LETROZOLE
     Indication: Breast cancer female
     Dosage: UNK
     Dates: start: 202302
  5. FEMARA [Concomitant]
     Active Substance: LETROZOLE
     Dosage: 75 MG A DAY
     Dates: start: 20230302
  6. ARICEPT [Concomitant]
     Active Substance: DONEPEZIL HYDROCHLORIDE
     Dosage: UNK

REACTIONS (5)
  - White blood cell count decreased [Unknown]
  - Cataract [Recovering/Resolving]
  - Neutropenia [Unknown]
  - Product prescribing error [Unknown]
  - Pyrexia [Unknown]
